FAERS Safety Report 8421346-6 (Version None)
Quarter: 2012Q2

REPORT INFORMATION
  Report Type: 
  Country: None (occurrence: None)
  Receive Date: 20120608
  Receipt Date: 20120602
  Transmission Date: 20120825
  Serious: Yes (Other)
  Sender: FDA-Public Use
  Company Number: PHHY2012MX042841

PATIENT
  Sex: Female

DRUGS (8)
  1. DIOVAN [Suspect]
     Indication: HYPERTENSION
     Dosage: 2 DF (80 MG), DAILY
     Dates: start: 20090301, end: 20120330
  2. INSULIN [Concomitant]
     Dosage: 41 IU, DAILY
  3. LEVOTHYROXINE SODIUM [Concomitant]
     Dosage: 1 TABLET (100 MG) DAILY
  4. ITOPRIDE [Concomitant]
     Dosage: 50 MG, DAILY
     Dates: start: 20120330
  5. PRAVASTATIN [Concomitant]
     Dosage: UNK UKN, UNK
     Dates: start: 20120329
  6. CLONAZEPAM [Concomitant]
     Dosage: UNK UKN, UNK
  7. OMEPRAZOLE [Concomitant]
     Dosage: 1 TABLET (20 MG) DAILY
  8. METFORMIN HCL [Concomitant]
     Dosage: UNK UKN, UNK

REACTIONS (3)
  - BLOOD SODIUM DECREASED [None]
  - BLOOD PRESSURE INADEQUATELY CONTROLLED [None]
  - SPEECH DISORDER [None]
